FAERS Safety Report 6626713-9 (Version None)
Quarter: 2010Q1

REPORT INFORMATION
  Report Type: 
  Country: None (occurrence: None)
  Receive Date: 20100308
  Receipt Date: 20100302
  Transmission Date: 20100710
  Serious: Yes (Other)
  Sender: FDA-Public Use
  Company Number: SPV1-2010-00373

PATIENT
  Age: 31 Year
  Sex: Female

DRUGS (1)
  1. XAGRID(ANAGRELIDE HYDROCHLORIDE) CAPSULE [Suspect]
     Indication: DRUG USE FOR UNKNOWN INDICATION
     Dosage: 0.5 MG, 2X/DAY:BID, ORAL
     Route: 048

REACTIONS (3)
  - ANTEPARTUM HAEMORRHAGE [None]
  - DRUG EXPOSURE DURING PREGNANCY [None]
  - PREGNANCY [None]
